FAERS Safety Report 4421953-1 (Version None)
Quarter: 2004Q3

REPORT INFORMATION
  Report Type: 
  Country: None (occurrence: None)
  Receive Date: 20040806
  Receipt Date: 20040729
  Transmission Date: 20050211
  Serious: Yes (Other)
  Sender: FDA-Public Use
  Company Number: 2004226225US

PATIENT
  Age: 50 Year
  Sex: Female

DRUGS (4)
  1. PROVERA [Suspect]
     Route: 065
     Dates: start: 19850901, end: 20010101
  2. ESTRACE [Suspect]
     Dosage: UNK, UNK, UNK
     Dates: start: 19930801, end: 19941201
  3. PREMARIN [Suspect]
     Dosage: UNK, UNK, UNK
     Route: 065
     Dates: start: 19910701, end: 19930801
  4. PREMARIN [Suspect]
     Dosage: UNK, UNK, UNK
     Route: 065
     Dates: start: 19941201, end: 20010101

REACTIONS (1)
  - BREAST CANCER FEMALE [None]
